FAERS Safety Report 7755251-5 (Version None)
Quarter: 2011Q3

REPORT INFORMATION
  Report Type: 
  Country: None (occurrence: None)
  Receive Date: 20110914
  Receipt Date: 20110901
  Transmission Date: 20111222
  Serious: Yes (Other)
  Sender: FDA-Public Use
  Company Number: AU-006205

PATIENT
  Sex: Female

DRUGS (2)
  1. MINIRIN [Suspect]
     Indication: DIABETES INSIPIDUS
     Dosage: NASAL
     Route: 045
  2. MINIRIN [Suspect]
     Indication: DIABETES INSIPIDUS
     Dosage: ORAL
     Route: 048

REACTIONS (2)
  - HYPERNATRAEMIA [None]
  - HYPONATRAEMIA [None]
